FAERS Safety Report 6843143-5 (Version None)
Quarter: 2010Q3

REPORT INFORMATION
  Report Type: 
  Country: None (occurrence: None)
  Receive Date: 20100715
  Receipt Date: 20100707
  Transmission Date: 20110219
  Serious: No
  Sender: FDA-Public Use
  Company Number: US-BIOGENIDEC-2010BI011860

PATIENT
  Age: 37 Year
  Sex: Female

DRUGS (2)
  1. TYSABRI [Suspect]
     Indication: MULTIPLE SCLEROSIS
     Route: 042
     Dates: start: 20100319
  2. TYSABRI [Suspect]
     Route: 042
     Dates: start: 20041221

REACTIONS (6)
  - ANGER [None]
  - HEADACHE [None]
  - INSOMNIA [None]
  - NECK PAIN [None]
  - PAIN [None]
  - POOR QUALITY SLEEP [None]
